FAERS Safety Report 7227301-6 (Version None)
Quarter: 2011Q1

REPORT INFORMATION
  Report Type: 
  Country: None (occurrence: None)
  Receive Date: 20110114
  Receipt Date: 20110106
  Transmission Date: 20110831
  Serious: Yes (Life-Threatening)
  Sender: FDA-Public Use
  Company Number: B0670019A

PATIENT
  Age: 5 Year
  Sex: Male

DRUGS (6)
  1. LOPINAVIR/RITONAVIR [Suspect]
     Indication: MALARIA PROPHYLAXIS
     Route: 048
     Dates: start: 20100317
  2. BACTRIM [Suspect]
     Indication: MALARIA PROPHYLAXIS
     Route: 065
  3. PARACETAMOL [Concomitant]
  4. ZIDOVUDINE [Suspect]
     Indication: MALARIA PROPHYLAXIS
     Route: 065
     Dates: start: 20100317
  5. LAMIVUDINE [Suspect]
     Indication: MALARIA PROPHYLAXIS
     Route: 065
     Dates: start: 20100317
  6. ARTEMETHER + LUMEFANTRINE [Concomitant]

REACTIONS (3)
  - NEUTROPENIA [None]
  - COUGH [None]
  - PYREXIA [None]
